FAERS Safety Report 9687483 (Version 2)
Quarter: 2013Q4

REPORT INFORMATION
  Report Type: Spontaneous
  Country: NO (occurrence: NO)
  Receive Date: 20131114
  Receipt Date: 20131114
  Transmission Date: 20140711
  Serious: Yes (Hospitalization, Other)
  Sender: FDA-Public Use
  Company Number: NO-009507513-2012SP032692

PATIENT
  Sex: Male

DRUGS (10)
  1. TRILAFON [Suspect]
     Indication: PSYCHOTIC DISORDER
     Dosage: 2 TABLETS EVERY NIGHT
     Route: 065
     Dates: start: 1990, end: 2009
  2. ALOPAM [Suspect]
     Indication: PRODUCT USED FOR UNKNOWN INDICATION
     Dosage: UNK UNK, UNKNOWN
     Route: 065
     Dates: start: 1990, end: 201004
  3. VIVALAN [Suspect]
     Indication: PRODUCT USED FOR UNKNOWN INDICATION
     Dosage: UNK UNK, UNKNOWN
     Route: 065
     Dates: start: 1990, end: 201004
  4. CIPRAMIL [Concomitant]
     Indication: SCHIZOAFFECTIVE DISORDER DEPRESSIVE TYPE
     Dosage: UNK UNK, UNKNOWN
     Route: 065
  5. TOLVON [Concomitant]
     Indication: SCHIZOAFFECTIVE DISORDER DEPRESSIVE TYPE
     Dosage: UNK UNK, UNKNOWN
     Route: 065
  6. NOZINAN [Concomitant]
     Indication: SCHIZOAFFECTIVE DISORDER DEPRESSIVE TYPE
     Dosage: UNK UNK, UNKNOWN
     Route: 065
  7. FLUANXOL [Concomitant]
     Indication: SCHIZOAFFECTIVE DISORDER DEPRESSIVE TYPE
     Dosage: UNK UNK, UNKNOWN
     Route: 065
  8. RISPERDAL [Concomitant]
     Indication: SCHIZOAFFECTIVE DISORDER DEPRESSIVE TYPE
     Dosage: UNK UNK, UNKNOWN
     Route: 065
  9. VARENICLINE TARTRATE [Concomitant]
     Indication: EX-TOBACCO USER
     Dates: start: 2008
  10. THIAMINE [Concomitant]
     Indication: PRODUCT USED FOR UNKNOWN INDICATION
     Dosage: ALCOHOL ABSTINENCE
     Dates: start: 2006

REACTIONS (15)
  - Anxiety [Unknown]
  - Depression [Unknown]
  - Visual acuity reduced [Unknown]
  - Cerebral lobotomy [Unknown]
  - Blepharospasm [Unknown]
  - Back pain [Unknown]
  - Abnormal sensation in eye [Unknown]
  - Upper respiratory tract infection [Unknown]
  - Dyspepsia [Unknown]
  - Pneumonia [Unknown]
  - Nocturia [Unknown]
  - Chronic obstructive pulmonary disease [Unknown]
  - Asthenia [Unknown]
  - Fatigue [Unknown]
  - Amnesia [Unknown]
